FAERS Safety Report 7829354-0 (Version None)
Quarter: 2011Q4

REPORT INFORMATION
  Report Type: 
  Country: None (occurrence: None)
  Receive Date: 20111020
  Receipt Date: 20111012
  Transmission Date: 20120403
  Serious: Yes (Death)
  Sender: FDA-Public Use
  Company Number: MX-SANOFI-AVENTIS-2011SA067186

PATIENT
  Age: 54 Year
  Sex: Female

DRUGS (5)
  1. METFORMIN HCL [Concomitant]
     Indication: TYPE 2 DIABETES MELLITUS
     Route: 048
     Dates: start: 19940101, end: 20110922
  2. ENALAPRIL MALEATE [Concomitant]
     Route: 048
     Dates: start: 20100101, end: 20110922
  3. LOSARTAN POTASSIUM [Concomitant]
     Route: 048
     Dates: start: 20100101, end: 20110922
  4. INSULIN GLARGINE [Suspect]
     Indication: TYPE 2 DIABETES MELLITUS
     Dates: start: 20080101, end: 20110922
  5. SORBID [Concomitant]
     Route: 048
     Dates: start: 20100101, end: 20110922

REACTIONS (1)
  - MYOCARDIAL INFARCTION [None]
